FAERS Safety Report 21408153 (Version 1)
Quarter: 2022Q4

REPORT INFORMATION
  Report Type: Spontaneous
  Country: DE (occurrence: DE)
  Receive Date: 20221004
  Receipt Date: 20221004
  Transmission Date: 20230113
  Serious: Yes (Hospitalization, Other)
  Sender: FDA-Public Use
  Company Number: DE-ADRED-08397-01

PATIENT
  Age: 61 Year
  Sex: Male

DRUGS (4)
  1. OXALIPLATIN [Suspect]
     Active Substance: OXALIPLATIN
     Indication: Product used for unknown indication
     Dosage: 14062021
     Route: 065
  2. METOCLOPRAMIDE [Concomitant]
     Active Substance: METOCLOPRAMIDE
     Indication: Product used for unknown indication
     Dosage: 10 MG, AS NEEDED
     Route: 065
  3. Macrogol/Kaliumchlorid/Natriumcarbonat/Natriumchlorid [Concomitant]
     Indication: Product used for unknown indication
     Dosage: NEEDED
     Route: 065
  4. PANTOPRAZOLE SODIUM [Concomitant]
     Active Substance: PANTOPRAZOLE SODIUM
     Indication: Product used for unknown indication
     Dosage: 20 MG, 1-0-0-0
     Route: 065

REACTIONS (12)
  - Hypotension [None]
  - Haemoptysis [None]
  - Acute respiratory failure [None]
  - Chills [None]
  - Tachypnoea [None]
  - Pyrexia [None]
  - General physical health deterioration [None]
  - Dyspnoea [None]
  - Systemic infection [None]
  - Tachycardia [None]
  - Condition aggravated [None]
  - Cyanosis [None]
